FAERS Safety Report 6059134-0 (Version None)
Quarter: 2009Q1

REPORT INFORMATION
  Report Type: 
  Country: None (occurrence: None)
  Receive Date: 20090127
  Receipt Date: 20090127
  Transmission Date: 20090719
  Serious: Yes (Other)
  Sender: FDA-Public Use
  Company Number: None

PATIENT
  Age: 64 Year
  Sex: Female
  Weight: 99.7913 kg

DRUGS (2)
  1. NEURONTIN [Suspect]
     Indication: NEUROPATHY PERIPHERAL
     Dosage: ONE TID PO
     Route: 048
     Dates: start: 20081104, end: 20081108
  2. NEURONTIN [Suspect]
     Indication: NEUROPATHY PERIPHERAL
     Dosage: ONE AT NIGHT IF NEEDED PO
     Route: 048
     Dates: start: 20081105, end: 20081108

REACTIONS (14)
  - AMNESIA [None]
  - CARDIAC FAILURE [None]
  - COORDINATION ABNORMAL [None]
  - CYSTITIS [None]
  - DRUG TOXICITY [None]
  - FALL [None]
  - GAIT DISTURBANCE [None]
  - GASTRITIS EROSIVE [None]
  - GASTROINTESTINAL HYPOMOTILITY [None]
  - LETHARGY [None]
  - MUSCULAR WEAKNESS [None]
  - RENAL FAILURE [None]
  - TYPE 2 DIABETES MELLITUS [None]
  - WEIGHT DECREASED [None]
